FAERS Safety Report 21638307 (Version 2)
Quarter: 2023Q1

REPORT INFORMATION
  Report Type: Report from Study
  Country: US (occurrence: US)
  Receive Date: 20221124
  Receipt Date: 20230117
  Transmission Date: 20230418
  Serious: No
  Sender: FDA-Public Use
  Company Number: US-ABBVIE-4166090

PATIENT
  Sex: Female

DRUGS (1)
  1. HUMIRA [Suspect]
     Active Substance: ADALIMUMAB
     Indication: Exposure via body fluid
     Dosage: CF, STRENGTH: 40MG
     Route: 050

REACTIONS (2)
  - Maternal exposure during pregnancy [Unknown]
  - Paternal exposure during pregnancy [Unknown]
